FAERS Safety Report 4450078-4 (Version None)
Quarter: 2004Q3

REPORT INFORMATION
  Report Type: 
  Country: None (occurrence: None)
  Receive Date: 20040915
  Receipt Date: 20040823
  Transmission Date: 20050211
  Serious: Yes (Other)
  Sender: FDA-Public Use
  Company Number: MX-ROCHE-378374

PATIENT
  Age: 27 Year
  Sex: Female
  Weight: 68 kg

DRUGS (2)
  1. XENICAL [Suspect]
     Indication: OBESITY
     Route: 048
     Dates: start: 20040215, end: 20040415
  2. XENICAL [Suspect]
     Route: 048
     Dates: start: 20040806

REACTIONS (5)
  - ANAL DISCOMFORT [None]
  - GASTRIC ULCER [None]
  - HAEMATOCHEZIA [None]
  - LOWER GASTROINTESTINAL HAEMORRHAGE [None]
  - RECTAL HAEMORRHAGE [None]
